FAERS Safety Report 6800550-4 (Version None)
Quarter: 2010Q2

REPORT INFORMATION
  Report Type: 
  Country: None (occurrence: None)
  Receive Date: 20100629
  Receipt Date: 20100618
  Transmission Date: 20101027
  Serious: No
  Sender: FDA-Public Use
  Company Number: 2008BI035062

PATIENT
  Age: 51 Year
  Sex: Female

DRUGS (1)
  1. TYSABRI [Suspect]
     Indication: MULTIPLE SCLEROSIS
     Route: 042
     Dates: start: 20081218

REACTIONS (8)
  - ARTHRALGIA [None]
  - EOSINOPHIL COUNT INCREASED [None]
  - EYE PAIN [None]
  - FATIGUE [None]
  - HYPERSOMNIA [None]
  - NEUTROPHIL COUNT DECREASED [None]
  - PARAESTHESIA [None]
  - POLLAKIURIA [None]
